FAERS Safety Report 9889752 (Version 2)
Quarter: 2014Q1

REPORT INFORMATION
  Report Type: Spontaneous
  Country: US (occurrence: US)
  Receive Date: 20140211
  Receipt Date: 20140213
  Transmission Date: 20141002
  Serious: Yes (Other)
  Sender: FDA-Public Use
  Company Number: CHPA2014US002015

PATIENT
  Age: 54 Year
  Sex: Male

DRUGS (3)
  1. VOLTAREN GEL [Suspect]
     Indication: SWELLING
     Dosage: 4 G, 2-3 TIMES A DAY
     Route: 061
     Dates: start: 20140109
  2. VOLTAREN GEL [Suspect]
     Indication: HYPERSENSITIVITY
  3. VOLTAREN GEL [Suspect]
     Indication: OFF LABEL USE

REACTIONS (5)
  - Procedural haemorrhage [Recovered/Resolved]
  - Tongue haemorrhage [Recovered/Resolved]
  - Skin haemorrhage [Recovered/Resolved]
  - Tooth disorder [Recovered/Resolved]
  - Therapeutic response unexpected [Unknown]
